FAERS Safety Report 12528389 (Version 3)
Quarter: 2016Q3

REPORT INFORMATION
  Report Type: Spontaneous
  Country: US (occurrence: US)
  Receive Date: 20160705
  Receipt Date: 20160817
  Transmission Date: 20161109
  Serious: No
  Sender: FDA-Public Use
  Company Number: US-JNJFOC-20160622885

PATIENT
  Sex: Male
  Weight: 129.73 kg

DRUGS (4)
  1. STELARA [Suspect]
     Active Substance: USTEKINUMAB
     Indication: PSORIASIS
     Route: 058
  2. STELARA [Suspect]
     Active Substance: USTEKINUMAB
     Indication: PSORIASIS
     Route: 058
     Dates: start: 20160107
  3. STELARA [Suspect]
     Active Substance: USTEKINUMAB
     Indication: PSORIASIS
     Route: 058
  4. STELARA [Suspect]
     Active Substance: USTEKINUMAB
     Indication: PSORIASIS
     Route: 058
     Dates: start: 20160107

REACTIONS (5)
  - Urine analysis abnormal [Unknown]
  - Renal impairment [Recovering/Resolving]
  - Psoriasis [Unknown]
  - Hepatic enzyme increased [Recovered/Resolved]
  - Blood glucose increased [Recovering/Resolving]

NARRATIVE: CASE EVENT DATE: 2016
